FAERS Safety Report 5824573-7 (Version None)
Quarter: 2008Q3

REPORT INFORMATION
  Report Type: 
  Country: None (occurrence: None)
  Receive Date: 20080728
  Receipt Date: 20080717
  Transmission Date: 20090109
  Serious: Yes (Other)
  Sender: FDA-Public Use
  Company Number: US-MERCK-0807USA03608

PATIENT
  Age: 68 Year
  Sex: Female

DRUGS (2)
  1. PRIMAXIN [Suspect]
     Indication: PANCREATITIS NECROTISING
     Route: 042
     Dates: start: 20080709, end: 20080717
  2. [THERAPY UNSPECIFIED] [Concomitant]
     Route: 065

REACTIONS (1)
  - CLOSTRIDIAL INFECTION [None]
